FAERS Safety Report 5259954-6 (Version None)
Quarter: 2007Q1

REPORT INFORMATION
  Report Type: 
  Country: None (occurrence: None)
  Receive Date: 20070309
  Receipt Date: 20070305
  Transmission Date: 20070707
  Serious: Yes (Hospitalization)
  Sender: FDA-Public Use
  Company Number: FR-GLAXOSMITHKLINE-B0461018A

PATIENT
  Age: 55 Year
  Sex: Male
  Weight: 64 kg

DRUGS (9)
  1. AUGMENTIN '125' [Suspect]
     Indication: LUNG INFECTION
     Dosage: 1G THREE TIMES PER DAY
     Route: 042
     Dates: start: 20070123, end: 20070124
  2. KARDEGIC [Concomitant]
     Indication: CARDIAC INFECTION
     Dosage: 75MG PER DAY
     Route: 048
  3. FUROSEMIDE [Concomitant]
     Indication: ESSENTIAL HYPERTENSION
     Dosage: 40MG PER DAY
     Route: 048
  4. PREDNISONE [Concomitant]
     Indication: RHEUMATOID ARTHRITIS
     Dosage: 10MG PER DAY
     Route: 048
  5. IRBESARTAN [Concomitant]
     Indication: ESSENTIAL HYPERTENSION
     Dosage: 150MG PER DAY
     Route: 048
  6. KREDEX [Concomitant]
     Dosage: 25MG TWICE PER DAY
     Route: 048
  7. METFORMIN HCL [Concomitant]
     Dosage: 850MG PER DAY
     Route: 048
  8. KALEORID [Concomitant]
     Dosage: 1000MG PER DAY
     Route: 048
  9. ACETAMINOPHEN [Concomitant]
     Dosage: 500MG THREE TIMES PER DAY

REACTIONS (3)
  - HYPOTENSION [None]
  - PARAESTHESIA ORAL [None]
  - RASH MACULO-PAPULAR [None]
